FAERS Safety Report 16595423 (Version 1)
Quarter: 2019Q3

REPORT INFORMATION
  Report Type: Spontaneous
  Country: CA (occurrence: CA)
  Receive Date: 20190719
  Receipt Date: 20190719
  Transmission Date: 20191004
  Serious: Yes (Hospitalization, Other)
  Sender: FDA-Public Use
  Company Number: CA-AUROBINDO-AUR-APL-2019-040491

PATIENT

DRUGS (4)
  1. PREDNISONE. [Concomitant]
     Active Substance: PREDNISONE
     Indication: PRODUCT USED FOR UNKNOWN INDICATION
     Dosage: UNK
     Route: 065
  2. INFLIXIMAB [Suspect]
     Active Substance: INFLIXIMAB
     Indication: RHEUMATOID ARTHRITIS
     Dosage: 350 MILLIGRAM
     Route: 042
  3. DOMPERIDONE [Concomitant]
     Active Substance: DOMPERIDONE
     Indication: PRODUCT USED FOR UNKNOWN INDICATION
     Dosage: UNK
     Route: 065
  4. AMLODIPINE [Suspect]
     Active Substance: AMLODIPINE BESYLATE
     Indication: PRODUCT USED FOR UNKNOWN INDICATION
     Dosage: UNK
     Route: 065

REACTIONS (1)
  - Pneumonia [Unknown]
